FAERS Safety Report 7284903-9 (Version None)
Quarter: 2011Q1

REPORT INFORMATION
  Report Type: 
  Country: None (occurrence: None)
  Receive Date: 20110210
  Receipt Date: 20101001
  Transmission Date: 20110831
  Serious: Yes (Other)
  Sender: FDA-Public Use
  Company Number: US-BAYER-201034862NA

PATIENT
  Sex: Female
  Weight: 92.517 kg

DRUGS (9)
  1. YAZ [Suspect]
     Indication: CONTRACEPTION
     Dosage: UNK UNK, UNK
     Route: 065
     Dates: start: 20040101, end: 20060101
  2. IBUPROFEN [Concomitant]
     Dosage: 800 MG, UNK
     Route: 048
     Dates: start: 20061204
  3. YASMIN [Suspect]
     Indication: PREMENSTRUAL SYNDROME
  4. YAZ [Suspect]
     Indication: PREMENSTRUAL SYNDROME
  5. YASMIN [Suspect]
     Indication: CONTRACEPTION
     Route: 065
  6. HYDROCODONE BITARTRATE [Concomitant]
     Indication: PAIN
     Dosage: UNK
     Dates: start: 20060721
  7. TRAMADOL HCL PCH [Concomitant]
     Dosage: 50 MG, UNK
     Dates: start: 20061030
  8. PHENERGAN HCL [Concomitant]
     Indication: NAUSEA
     Dosage: 25 MG, UNK
     Dates: start: 20060720
  9. IBUPROFEN [Concomitant]
     Dosage: 600 MG, QID
     Route: 048
     Dates: start: 20060724

REACTIONS (7)
  - PELVIC PAIN [None]
  - MICTURITION URGENCY [None]
  - NAUSEA [None]
  - VOMITING [None]
  - BACK PAIN [None]
  - DIARRHOEA [None]
  - GALLBLADDER INJURY [None]
